FAERS Safety Report 6714999-1 (Version None)
Quarter: 2010Q2

REPORT INFORMATION
  Report Type: 
  Country: None (occurrence: None)
  Receive Date: 20100506
  Receipt Date: 20100506
  Transmission Date: 20101027
  Serious: Yes (Other)
  Sender: FDA-Public Use
  Company Number: None

PATIENT
  Age: 7 Month
  Sex: Female
  Weight: 10.4781 kg

DRUGS (4)
  1. CHILDREN'S MOTRIN [Suspect]
     Indication: PYREXIA
     Dosage: 1 TSP EVERY 6 HOURS PO
     Route: 048
     Dates: start: 20100414, end: 20100503
  2. CHILDREN'S MOTRIN [Suspect]
     Indication: TEETHING
     Dosage: 1 TSP EVERY 6 HOURS PO
     Route: 048
     Dates: start: 20100414, end: 20100503
  3. CHILDREN'S MOTRIN [Suspect]
     Indication: PYREXIA
     Dosage: 1 TSP EVERY 6 HOURS PO
     Route: 048
     Dates: start: 20100414, end: 20100503
  4. CHILDREN'S MOTRIN [Suspect]
     Indication: TEETHING
     Dosage: 1 TSP EVERY 6 HOURS PO
     Route: 048
     Dates: start: 20100414, end: 20100503

REACTIONS (8)
  - CAMPYLOBACTER INFECTION [None]
  - DIARRHOEA [None]
  - HAEMATOCHEZIA [None]
  - HYPOPHAGIA [None]
  - MUCOUS STOOLS [None]
  - PRODUCT QUALITY ISSUE [None]
  - PYREXIA [None]
  - VOMITING [None]
